FAERS Safety Report 12460179 (Version 1)
Quarter: 2016Q2

REPORT INFORMATION
  Report Type: Spontaneous
  Country: US (occurrence: US)
  Receive Date: 20160613
  Receipt Date: 20160613
  Transmission Date: 20160815
  Serious: No
  Sender: FDA-Public Use
  Company Number: US-WATSON-2016-10730

PATIENT
  Age: 73 Year
  Sex: Male

DRUGS (1)
  1. DORZOLAMIDE-TIMOLOL (WATSON LABORATORIES) [Suspect]
     Active Substance: DORZOLAMIDE HYDROCHLORIDE\TIMOLOL MALEATE
     Indication: INTRAOCULAR PRESSURE INCREASED
     Dosage: 1 GTT DROP(S), BID
     Route: 047

REACTIONS (2)
  - Eye burns [Not Recovered/Not Resolved]
  - Ocular hyperaemia [Not Recovered/Not Resolved]
